FAERS Safety Report 9949301 (Version 1)
Quarter: 2014Q1

REPORT INFORMATION
  Report Type: Spontaneous
  Country: AR (occurrence: AR)
  Receive Date: 20140304
  Receipt Date: 20140304
  Transmission Date: 20141002
  Serious: Yes (Hospitalization, Other)
  Sender: FDA-Public Use
  Company Number: AR-AMGEN-ARGSP2014015292

PATIENT
  Age: 61 Year
  Sex: Female

DRUGS (5)
  1. ENBREL [Suspect]
     Indication: RHEUMATOID ARTHRITIS
     Dosage: 50 MG, WEEKLY
     Route: 058
     Dates: start: 2010
  2. DIOXAFLEX B12                      /01316601/ [Concomitant]
     Dosage: UNK
  3. DAFLON                             /00426001/ [Concomitant]
     Indication: ANGIOPATHY
     Dosage: 500 MG, 1X/DAY
  4. LEVOTHYROXINE [Concomitant]
     Indication: HYPOTHYROIDISM
     Dosage: 125 UG, 1X/DAY
  5. OMEPRAZOLE [Concomitant]
     Dosage: 20 MG, 1X/DAY

REACTIONS (1)
  - Breast cancer [Recovered/Resolved]
